FAERS Safety Report 5358650-4 (Version None)
Quarter: 2007Q2

REPORT INFORMATION
  Report Type: 
  Country: None (occurrence: None)
  Receive Date: 20070615
  Receipt Date: 20070605
  Transmission Date: 20071010
  Serious: Yes (Other)
  Sender: FDA-Public Use
  Company Number: CA-JNJFOC-20070601256

PATIENT
  Age: 48 Year
  Sex: Female

DRUGS (4)
  1. TOPAMAX [Suspect]
  2. TOPAMAX [Suspect]
     Indication: MIGRAINE PROPHYLAXIS
  3. AXERT [Concomitant]
     Indication: MIGRAINE
  4. PREXIGE [Concomitant]
     Indication: MUSCULOSKELETAL PAIN

REACTIONS (2)
  - INSOMNIA [None]
  - PHOTOPSIA [None]
